FAERS Safety Report 16817954 (Version 2)
Quarter: 2019Q4

REPORT INFORMATION
  Report Type: Spontaneous
  Country: CZ (occurrence: CZ)
  Receive Date: 20190917
  Receipt Date: 20191004
  Transmission Date: 20200122
  Serious: Yes (Other)
  Sender: FDA-Public Use
  Company Number: CZ-JNJFOC-20190914510

PATIENT
  Sex: Female

DRUGS (2)
  1. IMBRUVICA [Suspect]
     Active Substance: IBRUTINIB
     Dosage: IMBRUVICA 140 MG 4 TABLETS IN THE MORNING FOR 7 WEEKS
     Route: 048
  2. IMBRUVICA [Suspect]
     Active Substance: IBRUTINIB
     Indication: GASTROINTESTINAL LYMPHOMA
     Dosage: IMBRUVICA 140 MG 4 TABLETS IN THE MORNING FOR 7 WEEKS
     Route: 048

REACTIONS (10)
  - Diarrhoea [Unknown]
  - Dyspepsia [Unknown]
  - Off label use [Unknown]
  - Malaise [Recovered/Resolved]
  - Seizure [Unknown]
  - Vein rupture [Recovered/Resolved]
  - Abdominal pain upper [Unknown]
  - Product use in unapproved indication [Unknown]
  - Epistaxis [Recovered/Resolved]
  - Faeces discoloured [Recovered/Resolved]
